FAERS Safety Report 18879650 (Version 1)
Quarter: 2021Q1

REPORT INFORMATION
  Report Type: Spontaneous
  Country: HK (occurrence: HK)
  Receive Date: 20210211
  Receipt Date: 20210211
  Transmission Date: 20210420
  Serious: Yes (Other)
  Sender: FDA-Public Use
  Company Number: HK-ELI_LILLY_AND_COMPANY-HK202102000945

PATIENT
  Age: 26 Year
  Sex: Female

DRUGS (2)
  1. TERIPARATIDE [Suspect]
     Active Substance: TERIPARATIDE
     Indication: HYPERPHOSPHATAEMIA
  2. TERIPARATIDE [Suspect]
     Active Substance: TERIPARATIDE
     Indication: HYPERCALCAEMIA
     Dosage: 20 UG, EVERY OTHER DAY
     Route: 058
     Dates: start: 201701

REACTIONS (3)
  - Off label use [Unknown]
  - Inappropriate schedule of product administration [Unknown]
  - Hypocalcaemia [Recovered/Resolved]

NARRATIVE: CASE EVENT DATE: 201701
